FAERS Safety Report 7247254 (Version 2)
Quarter: 2013Q2

REPORT INFORMATION
  Report Type: Spontaneous
  Country: US (occurrence: US)
  Receive Date: 20100115
  Receipt Date: 20130530
  Transmission Date: 20140414
  Serious: Yes (Death)
  Sender: FDA-Public Use
  Company Number: US-PFIZER INC-2010001692

PATIENT
  Sex: Male

DRUGS (6)
  1. GABAPENTIN [Suspect]
     Route: 048
  2. ZOLPIDEM TARTRATE [Suspect]
     Dosage: UNK
     Route: 048
  3. OXYCODONE [Suspect]
     Route: 048
  4. DULOXETINE [Suspect]
     Dosage: UNK
     Route: 048
  5. BUPROPION [Suspect]
     Route: 048
  6. DIPHENHYDRAMINE [Suspect]
     Route: 048

REACTIONS (3)
  - Death [Fatal]
  - Cardiac arrest [Fatal]
  - Respiratory arrest [Fatal]
